FAERS Safety Report 25889018 (Version 2)
Quarter: 2025Q4

REPORT INFORMATION
  Report Type: Spontaneous
  Country: US (occurrence: US)
  Receive Date: 20251007
  Receipt Date: 20251024
  Transmission Date: 20260118
  Serious: Yes (Other)
  Sender: ALKEM
  Company Number: None

PATIENT
  Age: 69 Year
  Sex: Male

DRUGS (5)
  1. GABAPENTIN [Suspect]
     Active Substance: GABAPENTIN
     Indication: Pain
     Dosage: 1800 MILLIGRAM, QD
     Route: 065
  2. MORPHINE SULFATE [Suspect]
     Active Substance: MORPHINE SULFATE
     Indication: Pain
     Dosage: 90 MILLIGRAM, QD (EXTENDED RELEASE)
     Route: 065
  3. ACETAMINOPHEN\HYDROCODONE [Suspect]
     Active Substance: ACETAMINOPHEN\HYDROCODONE
     Indication: Pain
     Dosage: UNK, TID (10-325 MG)
     Route: 065
  4. MEGESTROL ACETATE [Suspect]
     Active Substance: MEGESTROL ACETATE
     Indication: Pain
     Dosage: 400 MILLIGRAM, QD
     Route: 065
  5. MEGESTROL ACETATE [Suspect]
     Active Substance: MEGESTROL ACETATE
     Dosage: UNK (DOSE WAS TAPERED BY 50 PERCENTAGE PER MONTH OVER THREE MONTHS)
     Route: 065

REACTIONS (5)
  - Adrenal insufficiency [Recovered/Resolved]
  - Blood testosterone decreased [Not Recovered/Not Resolved]
  - Cortisol decreased [Unknown]
  - Hypogonadism [Unknown]
  - Fatigue [Recovering/Resolving]
